FAERS Safety Report 8363767-6 (Version None)
Quarter: 2012Q1

REPORT INFORMATION
  Report Type: 
  Country: None (occurrence: None)
  Receive Date: 20120323
  Receipt Date: 20111122
  Transmission Date: 20120608
  Serious: Yes (Hospitalization)
  Sender: FDA-Public Use
  Company Number: 163-21880-11113224

PATIENT
  Age: 67 Year
  Sex: Male

DRUGS (10)
  1. COUMADIN [Concomitant]
  2. NEURONTIN [Concomitant]
  3. NOVOLOG [Concomitant]
  4. POTASSIUM CHLORIDE [Concomitant]
  5. KEPPRA [Concomitant]
  6. TOPROL-XL [Concomitant]
  7. REVLIMID [Suspect]
     Indication: MULTIPLE MYELOMA
     Dosage: 10 MG, PO , 10 MG, PO
     Route: 048
     Dates: start: 20111118
  8. REVLIMID [Suspect]
     Indication: MULTIPLE MYELOMA
     Dosage: 10 MG, PO , 10 MG, PO
     Route: 048
     Dates: start: 20111028
  9. ZOCOR [Concomitant]
  10. ZOVIRAX [Concomitant]

REACTIONS (1)
  - ANAEMIA [None]
